FAERS Safety Report 10015245 (Version 2)
Quarter: 2014Q1

REPORT INFORMATION
  Report Type: Spontaneous
  Country: US (occurrence: US)
  Receive Date: 20140317
  Receipt Date: 20140317
  Transmission Date: 20141002
  Serious: No
  Sender: FDA-Public Use
  Company Number: US-PFIZER INC-2014037664

PATIENT
  Age: 57 Year
  Sex: Female
  Weight: 125.62 kg

DRUGS (20)
  1. PRISTIQ [Suspect]
     Indication: DEPRESSION
     Dosage: 100 MG, DAILY
     Route: 048
     Dates: start: 201305
  2. LYRICA [Concomitant]
     Indication: FIBROMYALGIA
     Dosage: UNK (1.5 CAPSULES OF 100 MG FOR 90 DAYS), 2X/DAY
     Route: 048
     Dates: start: 20140203
  3. ABILIFY [Concomitant]
     Dosage: 1 DF, 1X/DAY
     Route: 048
     Dates: start: 20131122
  4. ASPIRIN [Concomitant]
     Dosage: 81 MG (1 TABLET ONCE), 1X/DAY
     Route: 048
  5. ATENOLOL [Concomitant]
     Dosage: 25 MG (1 TABLET ONCE FOR 90 DAYS), 1X/DAY
     Route: 048
     Dates: start: 20131122
  6. AZELASTINE [Concomitant]
     Dosage: 137 UG (2 SPRAYS IN EACH NOSTRIL FOR 90 DAYS), 2X/DAY
     Route: 045
     Dates: start: 20140127
  7. CITRUCEL [Concomitant]
     Dosage: UNK, AS DIRECTED
     Route: 048
  8. CLARITIN [Concomitant]
     Dosage: 10 MG (1 TABLET ONCE), 1X/DAY
     Route: 048
  9. CYMBALTA [Concomitant]
     Dosage: 2 DF (TWO CAPSULES OF 60MG), 1X/DAY
     Route: 048
     Dates: start: 20131120
  10. FEXOFENADINE [Concomitant]
     Dosage: 180 MG (1 TABLET ONCE FOR 90 DAYS), 1X/DAY
     Route: 048
     Dates: start: 20140109
  11. FUROSEMIDE [Concomitant]
     Dosage: 40 MG (1 TABLET), 1X/DAY
     Route: 048
     Dates: start: 20131105
  12. IBUPROFEN [Concomitant]
     Dosage: 200 MG (1 TABLET), EVERY 6 HOURS AS NEEDED
     Route: 048
  13. KLONOPIN [Concomitant]
     Dosage: 0.5 MG (1 TABLET), 3X/DAY
     Route: 048
     Dates: start: 20130617
  14. LASIX [Concomitant]
     Dosage: 40 MG (1 TABLET ONCE), 1X/DAY
     Route: 048
     Dates: start: 20130108
  15. LEVOTHYROXINE [Concomitant]
     Dosage: 125 UG (1 TABLET), 1X/DAY
     Route: 048
     Dates: start: 20130605
  16. LORTAB [Concomitant]
     Dosage: 1 DF (HYDROCODONE BITARTRATE-7.5MG, PARACETAMOL-500MG), 3X/DAY (AS NEEDED)
     Route: 048
     Dates: start: 20131216
  17. NASONEX [Concomitant]
     Dosage: 50UG/ACTUATION (2 SPRAYS IN EACH NOSTRIL ONCE), 1X/DAY
     Route: 045
  18. SIMVASTATIN [Concomitant]
     Dosage: 20 MG (1 TABLET EVERYDAY IN THE EVENING), 1X/DAY
     Route: 048
     Dates: start: 20130911
  19. TOPAMAX [Concomitant]
     Dosage: 100 MG (1 TABLET), 2X/DAY
     Route: 048
     Dates: start: 20131122
  20. TOPIRAMATE [Concomitant]
     Dosage: 50 MG (1 TABLET), 2X/DAY
     Route: 048
     Dates: start: 20131224

REACTIONS (1)
  - Malaise [Not Recovered/Not Resolved]
